FAERS Safety Report 10063230 (Version 1)
Quarter: 2014Q2

REPORT INFORMATION
  Report Type: Spontaneous
  Country: NZ (occurrence: NZ)
  Receive Date: 20140407
  Receipt Date: 20140407
  Transmission Date: 20141212
  Serious: Yes (Hospitalization)
  Sender: FDA-Public Use
  Company Number: CHPA2014NZ004757

PATIENT
  Age: 79 Year
  Sex: Male

DRUGS (2)
  1. ACETYLSALICYLIC ACID [Suspect]
     Dosage: UNK
     Route: 065
  2. CLOPIDOGREL [Suspect]
     Route: 065

REACTIONS (5)
  - Haematoma [Recovered/Resolved]
  - Back pain [Recovered/Resolved]
  - Swelling [Recovered/Resolved]
  - Contusion [Recovered/Resolved]
  - Haemoglobin decreased [Recovered/Resolved]
